FAERS Safety Report 18085661 (Version 1)
Quarter: 2020Q3

REPORT INFORMATION
  Report Type: Spontaneous
  Country: US (occurrence: US)
  Receive Date: 20200728
  Receipt Date: 20200728
  Transmission Date: 20201103
  Serious: Yes (Other)
  Sender: FDA-Public Use
  Company Number: None

PATIENT
  Age: 63 Year
  Sex: Female
  Weight: 113 kg

DRUGS (4)
  1. REMDESIVIR. [Suspect]
     Active Substance: REMDESIVIR
     Indication: COVID-19
     Route: 040
     Dates: start: 20200722, end: 20200724
  2. INSULIN GLARGINE 35 UNITS BID [Concomitant]
     Dates: start: 20200719
  3. PANTOPROZOLE 40MG DAILY [Concomitant]
     Dates: start: 20200721
  4. GABAPENTIN 300MG TID [Concomitant]
     Dates: start: 20200712

REACTIONS (4)
  - Alanine aminotransferase increased [None]
  - Blood creatinine increased [None]
  - Aspartate aminotransferase increased [None]
  - Glomerular filtration rate decreased [None]

NARRATIVE: CASE EVENT DATE: 20200723
